FAERS Safety Report 8174003-8 (Version None)
Quarter: 2012Q1

REPORT INFORMATION
  Report Type: 
  Country: None (occurrence: None)
  Receive Date: 20120224
  Receipt Date: 20120210
  Transmission Date: 20120608
  Serious: Yes (Congenital Anomaly)
  Sender: FDA-Public Use
  Company Number: 1000028555

PATIENT

DRUGS (1)
  1. CELEXA [Suspect]
     Dosage: 40 MG (40 MG, 1 IN 1 D) TRANSPLACENTAL
     Route: 064

REACTIONS (3)
  - MATERNAL DRUGS AFFECTING FOETUS [None]
  - SINGLE FUNCTIONAL KIDNEY [None]
  - RENAL APLASIA [None]
